FAERS Safety Report 10587741 (Version 2)
Quarter: 2014Q4

REPORT INFORMATION
  Report Type: Spontaneous
  Country: PT (occurrence: PT)
  Receive Date: 20141117
  Receipt Date: 20141203
  Transmission Date: 20150529
  Serious: Yes (Other)
  Sender: FDA-Public Use
  Company Number: PT-KOWA-2014S1001505

PATIENT
  Sex: Male

DRUGS (1)
  1. LIVAZO [Suspect]
     Active Substance: PITAVASTATIN CALCIUM
     Indication: PRODUCT USED FOR UNKNOWN INDICATION
     Route: 048
     Dates: start: 201409, end: 201409

REACTIONS (16)
  - Memory impairment [Not Recovered/Not Resolved]
  - Somnolence [Unknown]
  - Rhinitis [Unknown]
  - Malaise [Unknown]
  - Muscle disorder [Recovered/Resolved]
  - Cognitive disorder [Not Recovered/Not Resolved]
  - Constipation [Unknown]
  - Dizziness [Not Recovered/Not Resolved]
  - Myopathy [Unknown]
  - Aphasia [Not Recovered/Not Resolved]
  - Anaemia [Unknown]
  - Cough [Unknown]
  - Decreased appetite [Unknown]
  - Vertigo [Recovering/Resolving]
  - Fatigue [Unknown]
  - Nasopharyngitis [Unknown]

NARRATIVE: CASE EVENT DATE: 201409
